FAERS Safety Report 4269943-6 (Version None)
Quarter: 2004Q1

REPORT INFORMATION
  Report Type: 
  Country: None (occurrence: None)
  Receive Date: 20040114
  Receipt Date: 20040105
  Transmission Date: 20041129
  Serious: Yes (Hospitalization, Disabling)
  Sender: FDA-Public Use
  Company Number: PHFR2004GB00463

PATIENT
  Age: 83 Year
  Sex: Male

DRUGS (11)
  1. RIVASTIGMINE [Suspect]
     Indication: HALLUCINATION
     Dosage: 4.5 MG/DAY
     Route: 048
     Dates: start: 20020101, end: 20031119
  2. ASPIRIN [Concomitant]
     Indication: ANGINA PECTORIS
     Dosage: 75 MG/DAY
     Route: 048
  3. ISOSORBIDE MONONITRATE [Concomitant]
     Indication: ANGINA PECTORIS
     Dosage: 50 MG/DAY
     Route: 048
     Dates: start: 20031118
  4. AMLODIPINE BESYLATE [Concomitant]
     Indication: HYPERTENSION
     Dosage: 5 MG/DAY
  5. GTN [Concomitant]
     Indication: ANGINA PECTORIS
     Dosage: SPRAY 2 PUFFS
     Route: 060
  6. ACETAMINOPHEN [Concomitant]
     Indication: PYREXIA
     Dosage: 1 G, QID
     Route: 048
  7. SALBUTAMOL [Concomitant]
     Indication: DYSPNOEA
     Dosage: 2.5 MG, PRN
     Route: 055
  8. THIAMINE [Concomitant]
     Dosage: 300 MG, QD
     Route: 048
  9. VITAMIN B COMPLEX CAP [Concomitant]
     Dosage: 2 OT, TID
     Route: 048
  10. AUGMENTIN                               /SCH/ [Concomitant]
     Dosage: 375 MG, TID
     Route: 048
  11. DIAZEPAM [Concomitant]
     Indication: AGITATION
     Dosage: 5 MG 2 HOURLY AS REQUIRED
     Route: 065
     Dates: start: 20031127, end: 20031202

REACTIONS (2)
  - DEPRESSED LEVEL OF CONSCIOUSNESS [None]
  - DYSKINESIA [None]
